FAERS Safety Report 16307699 (Version 1)
Quarter: 2019Q2

REPORT INFORMATION
  Report Type: Spontaneous
  Country: GB (occurrence: GB)
  Receive Date: 20190514
  Receipt Date: 20190514
  Transmission Date: 20190711
  Serious: Yes (Hospitalization)
  Sender: FDA-Public Use
  Company Number: GB-TEVA-2019-GB-1048148

PATIENT
  Age: 38 Year
  Sex: Female
  Weight: 56 kg

DRUGS (8)
  1. OMEPRAZOLE. [Concomitant]
     Active Substance: OMEPRAZOLE
     Dosage: HELD.
  2. PARACETAMOL [Concomitant]
     Active Substance: ACETAMINOPHEN
  3. TRAMADOL. [Concomitant]
     Active Substance: TRAMADOL
  4. ONDANSETRON [Concomitant]
     Active Substance: ONDANSETRON
  5. HYDROXYCHLOROQUINE SULFATE. [Concomitant]
     Active Substance: HYDROXYCHLOROQUINE SULFATE
  6. WARFARIN [Suspect]
     Active Substance: WARFARIN
     Indication: ANTIPHOSPHOLIPID SYNDROME
     Dosage: 6 MILLIGRAM DAILY; (DOSE ADJUSTED ACCORDING TO INR RESULT)
     Route: 048
     Dates: start: 20180601, end: 20190327
  7. PREDNISOLONE. [Concomitant]
     Active Substance: PREDNISOLONE
     Dosage: 5 MILLIGRAM DAILY; MORNING. DOSE INCREASED TO 10MG FOR 4 DAYS WHILE UNWELL
  8. PROPRANOLOL [Concomitant]
     Active Substance: PROPRANOLOL HYDROCHLORIDE

REACTIONS (5)
  - Portal vein thrombosis [Unknown]
  - Pyrexia [Unknown]
  - Haematemesis [Unknown]
  - Oesophageal varices haemorrhage [Recovered/Resolved]
  - Chills [Unknown]

NARRATIVE: CASE EVENT DATE: 20190326
